FAERS Safety Report 16509660 (Version 1)
Quarter: 2019Q3

REPORT INFORMATION
  Report Type: Spontaneous
  Country: US (occurrence: US)
  Receive Date: 20190701
  Receipt Date: 20190701
  Transmission Date: 20191004
  Serious: Yes (Life-Threatening)
  Sender: FDA-Public Use
  Company Number: None

PATIENT
  Age: 53 Year
  Sex: Female
  Weight: 69.5 kg

DRUGS (1)
  1. SODIUM GLYCEROPHOSPHATE [Suspect]
     Active Substance: SODIUM GLYCEROPHOSPHATE
     Indication: BLOOD PHOSPHORUS DECREASED
     Route: 040
     Dates: start: 20190630, end: 20190630

REACTIONS (4)
  - Tachypnoea [None]
  - Infusion related reaction [None]
  - Infusion site rash [None]
  - Adenoid cystic carcinoma [None]

NARRATIVE: CASE EVENT DATE: 20190630
